FAERS Safety Report 4583739-7 (Version None)
Quarter: 2005Q1

REPORT INFORMATION
  Report Type: 
  Country: None (occurrence: None)
  Receive Date: 20050211
  Receipt Date: 20050128
  Transmission Date: 20050727
  Serious: Yes (Other)
  Sender: FDA-Public Use
  Company Number: 212102

PATIENT
  Age: 51 Year
  Sex: Male
  Weight: 100.7 kg

DRUGS (1)
  1. RITUXAN [Suspect]
     Indication: VASCULITIS
     Dosage: 1000 MG, X2, INTRAVENOUS
     Route: 042
     Dates: start: 20041005, end: 20041019

REACTIONS (8)
  - ABDOMINAL DISCOMFORT [None]
  - ALANINE AMINOTRANSFERASE INCREASED [None]
  - ASPARTATE AMINOTRANSFERASE INCREASED [None]
  - BLOOD ALKALINE PHOSPHATASE INCREASED [None]
  - BLOOD BILIRUBIN INCREASED [None]
  - GAMMA-GLUTAMYLTRANSFERASE INCREASED [None]
  - LIVER FUNCTION TEST ABNORMAL [None]
  - VIRAL LOAD INCREASED [None]
